FAERS Safety Report 12915585 (Version 1)
Quarter: 2016Q4

REPORT INFORMATION
  Report Type: Spontaneous
  Country: US (occurrence: US)
  Receive Date: 20161106
  Receipt Date: 20161106
  Transmission Date: 20170207
  Serious: No
  Sender: FDA-Public Use
  Company Number: US-RELYPSA-RLY2016002722

PATIENT
  Sex: Male

DRUGS (8)
  1. FOSRENOL [Concomitant]
     Active Substance: LANTHANUM CARBONATE
  2. RENAPLEX D [Concomitant]
  3. VELTASSA [Suspect]
     Active Substance: PATIROMER
     Dosage: 4.2 G, QD
     Route: 048
     Dates: start: 2016, end: 2016
  4. VELTASSA [Suspect]
     Active Substance: PATIROMER
     Dosage: 8.4 G, QD
     Route: 048
     Dates: start: 2016
  5. SENSIPAR [Concomitant]
     Active Substance: CINACALCET HYDROCHLORIDE
  6. ASMANEX [Concomitant]
     Active Substance: MOMETASONE FUROATE
  7. SEREVENT DISKUS [Concomitant]
     Active Substance: SALMETEROL XINAFOATE
  8. VELTASSA [Suspect]
     Active Substance: PATIROMER
     Indication: HYPERKALAEMIA
     Dosage: 8.4 G, QD
     Route: 048
     Dates: start: 20160830, end: 2016

REACTIONS (2)
  - Sensitivity of teeth [Not Recovered/Not Resolved]
  - Constipation [Not Recovered/Not Resolved]
